FAERS Safety Report 8157879 (Version 4)
Quarter: 2012Q4

REPORT INFORMATION
  Report Type: 
  Country: US (occurrence: US)
  Receive Date: 20110927
  Receipt Date: 20121101
  Transmission Date: 20130627
  Serious: No
  Sender: FDA-Public Use
  Company Number: US-ASTRAZENECA-2011SE02324

PATIENT
  Age: 51 Year
  Sex: Female
  Weight: 72.6 kg

DRUGS (49)
  1. SEROQUEL [Suspect]
     Indication: DEPRESSION
     Route: 048
     Dates: start: 2010
  2. SEROQUEL [Suspect]
     Indication: SLEEP DISORDER
     Route: 048
     Dates: start: 2010
  3. SEROQUEL [Suspect]
     Indication: BIPOLAR I DISORDER
     Route: 048
     Dates: start: 2010
  4. SEROQUEL [Suspect]
     Indication: BIPOLAR DISORDER
     Route: 048
     Dates: start: 2010
  5. SEROQUEL [Suspect]
     Indication: POST-TRAUMATIC STRESS DISORDER
     Route: 048
     Dates: start: 2010
  6. SEROQUEL [Suspect]
     Indication: ANXIETY
     Route: 048
     Dates: start: 2010
  7. SEROQUEL [Suspect]
     Indication: DEPRESSION
     Route: 048
  8. SEROQUEL [Suspect]
     Indication: SLEEP DISORDER
     Route: 048
  9. SEROQUEL [Suspect]
     Indication: BIPOLAR I DISORDER
     Route: 048
  10. SEROQUEL [Suspect]
     Indication: BIPOLAR DISORDER
     Route: 048
  11. SEROQUEL [Suspect]
     Indication: POST-TRAUMATIC STRESS DISORDER
     Route: 048
  12. SEROQUEL [Suspect]
     Indication: ANXIETY
     Route: 048
  13. SEROQUEL [Suspect]
     Indication: DEPRESSION
     Dosage: CUT THE PILL INTO TWO
     Route: 048
  14. SEROQUEL [Suspect]
     Indication: SLEEP DISORDER
     Dosage: CUT THE PILL INTO TWO
     Route: 048
  15. SEROQUEL [Suspect]
     Indication: BIPOLAR I DISORDER
     Dosage: CUT THE PILL INTO TWO
     Route: 048
  16. SEROQUEL [Suspect]
     Indication: BIPOLAR DISORDER
     Dosage: CUT THE PILL INTO TWO
     Route: 048
  17. SEROQUEL [Suspect]
     Indication: POST-TRAUMATIC STRESS DISORDER
     Dosage: CUT THE PILL INTO TWO
     Route: 048
  18. SEROQUEL [Suspect]
     Indication: ANXIETY
     Dosage: CUT THE PILL INTO TWO
     Route: 048
  19. SEROQUEL [Suspect]
     Indication: DEPRESSION
     Route: 048
  20. SEROQUEL [Suspect]
     Indication: SLEEP DISORDER
     Route: 048
  21. SEROQUEL [Suspect]
     Indication: BIPOLAR I DISORDER
     Route: 048
  22. SEROQUEL [Suspect]
     Indication: BIPOLAR DISORDER
     Route: 048
  23. SEROQUEL [Suspect]
     Indication: POST-TRAUMATIC STRESS DISORDER
     Route: 048
  24. SEROQUEL [Suspect]
     Indication: ANXIETY
     Route: 048
  25. SEROQUEL [Suspect]
     Indication: DEPRESSION
     Route: 048
  26. SEROQUEL [Suspect]
     Indication: SLEEP DISORDER
     Route: 048
  27. SEROQUEL [Suspect]
     Indication: BIPOLAR I DISORDER
     Route: 048
  28. SEROQUEL [Suspect]
     Indication: BIPOLAR DISORDER
     Route: 048
  29. SEROQUEL [Suspect]
     Indication: POST-TRAUMATIC STRESS DISORDER
     Route: 048
  30. SEROQUEL [Suspect]
     Indication: ANXIETY
     Route: 048
  31. SEROQUEL [Suspect]
     Indication: DEPRESSION
     Route: 048
  32. SEROQUEL [Suspect]
     Indication: SLEEP DISORDER
     Route: 048
  33. SEROQUEL [Suspect]
     Indication: BIPOLAR I DISORDER
     Route: 048
  34. SEROQUEL [Suspect]
     Indication: BIPOLAR DISORDER
     Route: 048
  35. SEROQUEL [Suspect]
     Indication: POST-TRAUMATIC STRESS DISORDER
     Route: 048
  36. SEROQUEL [Suspect]
     Indication: ANXIETY
     Route: 048
  37. SEROQUEL [Suspect]
     Indication: DEPRESSION
     Route: 048
  38. SEROQUEL [Suspect]
     Indication: SLEEP DISORDER
     Route: 048
  39. SEROQUEL [Suspect]
     Indication: BIPOLAR I DISORDER
     Route: 048
  40. SEROQUEL [Suspect]
     Indication: BIPOLAR DISORDER
     Route: 048
  41. SEROQUEL [Suspect]
     Indication: POST-TRAUMATIC STRESS DISORDER
     Route: 048
  42. SEROQUEL [Suspect]
     Indication: ANXIETY
     Route: 048
  43. CELEXA [Concomitant]
  44. WELLBUTRIN [Concomitant]
  45. LAMICTAL [Concomitant]
  46. ADVAIR [Concomitant]
     Indication: ASTHMA
  47. XANAX [Concomitant]
  48. ALBUTEROL [Concomitant]
     Indication: ASTHMA
  49. ANTIVERT [Concomitant]
     Indication: VERTIGO

REACTIONS (6)
  - Tachyphrenia [Not Recovered/Not Resolved]
  - Insomnia [Unknown]
  - Sciatica [Unknown]
  - Back pain [Unknown]
  - Drug dose omission [Unknown]
  - Off label use [Unknown]
